FAERS Safety Report 17740680 (Version 3)
Quarter: 2020Q3

REPORT INFORMATION
  Report Type: Spontaneous
  Country: US (occurrence: US)
  Receive Date: 20200504
  Receipt Date: 20200922
  Transmission Date: 20201102
  Serious: No
  Sender: FDA-Public Use
  Company Number: US-LEXICON PHARMACEUTICALS, INC-20-1606-00327

PATIENT
  Age: 48 Year
  Sex: Female

DRUGS (4)
  1. XERMELO [Suspect]
     Active Substance: TELOTRISTAT ETHYL
  2. LANREOTIDE [Concomitant]
     Active Substance: LANREOTIDE
  3. OCTREOTIDE. [Concomitant]
     Active Substance: OCTREOTIDE
  4. XERMELO [Suspect]
     Active Substance: TELOTRISTAT ETHYL
     Indication: CARCINOID SYNDROME
     Dates: start: 20200306

REACTIONS (4)
  - Nausea [Unknown]
  - Abdominal pain [Unknown]
  - Flushing [Unknown]
  - Product prescribing error [Unknown]
